FAERS Safety Report 13480099 (Version 1)
Quarter: 2017Q2

REPORT INFORMATION
  Report Type: Report from Study
  Country: US (occurrence: US)
  Receive Date: 20170425
  Receipt Date: 20170425
  Transmission Date: 20170830
  Serious: Yes (Hospitalization)
  Sender: FDA-Public Use
  Company Number: -ASTRAZENECA-2017SE42635

PATIENT
  Age: 60 Year
  Sex: Female
  Weight: 57.5 kg

DRUGS (11)
  1. OLAPARIB [Suspect]
     Active Substance: OLAPARIB
     Indication: ADENOCARCINOMA PANCREAS
     Dosage: 200.0MG AS REQUIRED
     Route: 048
     Dates: start: 20170116, end: 20170324
  2. COLACE [Concomitant]
     Active Substance: DOCUSATE SODIUM
     Indication: CONSTIPATION
     Dosage: 100.0MG AS REQUIRED
     Route: 048
     Dates: start: 20170220
  3. LEVAQUIN [Concomitant]
     Active Substance: LEVOFLOXACIN
     Indication: PYREXIA
     Dosage: 500.0MG UNKNOWN
     Route: 048
     Dates: start: 20170324
  4. BENADRYL [Concomitant]
     Active Substance: DIPHENHYDRAMINE HYDROCHLORIDE
     Indication: ANXIETY
     Dosage: 25.0MG AS REQUIRED
     Route: 048
     Dates: start: 201611
  5. AZD1775 [Suspect]
     Active Substance: INVESTIGATIONAL PRODUCT
     Indication: ADENOCARCINOMA PANCREAS
     Dosage: 175.0MG UNKNOWN
     Route: 048
     Dates: start: 20170123, end: 20170322
  6. IMODIUM [Concomitant]
     Active Substance: LOPERAMIDE HYDROCHLORIDE
     Indication: DIARRHOEA
     Dosage: 2.0MG UNKNOWN
     Route: 048
     Dates: start: 20170124
  7. ALEVE [Concomitant]
     Active Substance: NAPROXEN SODIUM
     Indication: PAIN
     Dosage: 220.0MG AS REQUIRED
     Route: 048
     Dates: start: 201612
  8. COMPAZINE [Concomitant]
     Active Substance: PROCHLORPERAZINE MALEATE
     Indication: NAUSEA
     Dosage: 10.0MG AS REQUIRED
     Dates: start: 2016
  9. ACETAMINOPHEN. [Concomitant]
     Active Substance: ACETAMINOPHEN
     Indication: PAIN
     Dosage: 500.0MG AS REQUIRED
     Route: 048
     Dates: start: 201611
  10. ATIVAN [Concomitant]
     Active Substance: LORAZEPAM
     Indication: NAUSEA
     Dosage: 1.0MG AS REQUIRED
     Route: 048
     Dates: start: 2016
  11. PROMETHAZINE [Concomitant]
     Active Substance: PROMETHAZINE\PROMETHAZINE HYDROCHLORIDE
     Indication: NAUSEA
     Dosage: 25.0MG AS REQUIRED
     Dates: start: 2016

REACTIONS (1)
  - Pneumonitis [Recovered/Resolved]

NARRATIVE: CASE EVENT DATE: 20170407
